FAERS Safety Report 14229349 (Version 1)
Quarter: 2017Q4

REPORT INFORMATION
  Report Type: Spontaneous
  Country: US (occurrence: US)
  Receive Date: 20171128
  Receipt Date: 20171128
  Transmission Date: 20180321
  Serious: No
  Sender: FDA-Public Use
  Company Number: US-PFIZER INC-2017510696

PATIENT
  Age: 54 Year
  Sex: Male

DRUGS (3)
  1. CEPHALEXIN. [Suspect]
     Active Substance: CEPHALEXIN
     Dosage: UNK
  2. VANCOMYCIN HCL [Suspect]
     Active Substance: VANCOMYCIN HYDROCHLORIDE
     Dosage: UNK
  3. BUMEX [Suspect]
     Active Substance: BUMETANIDE
     Dosage: UNK

REACTIONS (1)
  - Drug hypersensitivity [Unknown]
